FAERS Safety Report 9029958 (Version 1)
Quarter: 2013Q1

REPORT INFORMATION
  Report Type: Spontaneous
  Country: US (occurrence: US)
  Receive Date: 20130125
  Receipt Date: 20130125
  Transmission Date: 20140127
  Serious: Yes (Hospitalization, Other)
  Sender: FDA-Public Use
  Company Number: US-BIOGENIDEC-2012BI023835

PATIENT
  Sex: Female

DRUGS (8)
  1. AVONEX [Suspect]
     Indication: MULTIPLE SCLEROSIS
     Route: 030
     Dates: start: 20021106, end: 20050302
  2. AVONEX [Suspect]
     Indication: MULTIPLE SCLEROSIS
     Route: 030
     Dates: start: 20050627
  3. AVONEX [Suspect]
     Indication: MULTIPLE SCLEROSIS
     Route: 030
     Dates: start: 200710, end: 20110501
  4. AVONEX [Suspect]
     Indication: MULTIPLE SCLEROSIS
     Route: 030
     Dates: start: 20110812, end: 20121005
  5. MEDICATIONS (NOS) [Concomitant]
  6. ASPIRIN [Concomitant]
  7. VERAPAMIL [Concomitant]
  8. DIGOXIN [Concomitant]

REACTIONS (8)
  - Cerebrovascular accident [Unknown]
  - Cardiac disorder [Unknown]
  - Supraventricular tachycardia [Recovered/Resolved]
  - Oesophagitis [Not Recovered/Not Resolved]
  - Exostosis [Unknown]
  - Chronic obstructive pulmonary disease [Not Recovered/Not Resolved]
  - Herpes zoster [Not Recovered/Not Resolved]
  - Diabetes mellitus [Not Recovered/Not Resolved]
